FAERS Safety Report 18991538 (Version 1)
Quarter: 2021Q1

REPORT INFORMATION
  Report Type: Spontaneous
  Country: DE (occurrence: DE)
  Receive Date: 20210310
  Receipt Date: 20210310
  Transmission Date: 20210420
  Serious: Yes (Hospitalization)
  Sender: FDA-Public Use
  Company Number: NVSC2021DE052759

PATIENT
  Sex: Male
  Weight: 70 kg

DRUGS (4)
  1. AZATHIOPRINE. [Suspect]
     Active Substance: AZATHIOPRINE
     Indication: CROHN^S DISEASE
     Dosage: 75 MG, QD (1?0?0)
     Route: 065
     Dates: start: 20210216
  2. ZESSLY [Suspect]
     Active Substance: INFLIXIMAB
     Indication: PRODUCT USED FOR UNKNOWN INDICATION
     Dosage: 380 MG, UNKNOWN
     Route: 065
     Dates: start: 20210216
  3. COTRIM [Concomitant]
     Active Substance: SULFAMETHOXAZOLE\TRIMETHOPRIM
     Indication: ANTIFUNGAL PROPHYLAXIS
     Dosage: 960 MG, QW3 (1?0?0)
     Route: 065
     Dates: start: 20210216
  4. PREDNISOLONE. [Suspect]
     Active Substance: PREDNISOLONE
     Indication: CROHN^S DISEASE
     Dosage: 30 MG, QD (1?0?0)
     Route: 065
     Dates: start: 20210122

REACTIONS (3)
  - Anal fistula [Recovering/Resolving]
  - Anal abscess [Recovering/Resolving]
  - Proctalgia [Recovering/Resolving]

NARRATIVE: CASE EVENT DATE: 20210222
